FAERS Safety Report 5951940-3 (Version None)
Quarter: 2008Q4

REPORT INFORMATION
  Report Type: 
  Country: None (occurrence: None)
  Receive Date: 20081113
  Receipt Date: 20071011
  Transmission Date: 20090506
  Serious: No
  Sender: FDA-Public Use
  Company Number: A0682742A

PATIENT
  Age: 68 Year
  Sex: Male

DRUGS (8)
  1. COREG [Suspect]
     Indication: DRUG USE FOR UNKNOWN INDICATION
     Dosage: 6.25MG TWICE PER DAY
     Route: 048
     Dates: start: 20060101
  2. K-DUR [Concomitant]
  3. CAPTOPRIL [Concomitant]
  4. CARDIZEM [Concomitant]
  5. LASIX [Concomitant]
  6. DIGITEK [Concomitant]
  7. WARFARIN SODIUM [Concomitant]
  8. PRAVACHOL [Concomitant]

REACTIONS (1)
  - NAUSEA [None]
